FAERS Safety Report 25572086 (Version 1)
Quarter: 2025Q3

REPORT INFORMATION
  Report Type: Spontaneous
  Country: US (occurrence: US)
  Receive Date: 20250717
  Receipt Date: 20250717
  Transmission Date: 20251020
  Serious: Yes (Other)
  Sender: EDENBRIDGE PHARMACEUTICALS
  Company Number: US-EDENBRIDGE PHARMACEUTICALS, LLC-US-2025EDE000027

PATIENT

DRUGS (2)
  1. IVERMECTIN [Suspect]
     Active Substance: IVERMECTIN
     Indication: Osteosarcoma
     Route: 065
  2. REGORAFENIB [Concomitant]
     Active Substance: REGORAFENIB
     Indication: Osteosarcoma
     Route: 065

REACTIONS (4)
  - Acute kidney injury [Recovered/Resolved]
  - Neurotoxicity [Recovered/Resolved]
  - Drug interaction [Unknown]
  - Product use in unapproved indication [Unknown]
